FAERS Safety Report 14441988 (Version 1)
Quarter: 2018Q1

REPORT INFORMATION
  Report Type: Spontaneous
  Country: US (occurrence: US)
  Receive Date: 20180125
  Receipt Date: 20180125
  Transmission Date: 20180509
  Serious: Yes (Other)
  Sender: FDA-Public Use
  Company Number: US-ALLERGAN-1803591US

PATIENT
  Sex: Female

DRUGS (1)
  1. REFRESH CELLUVISC [Suspect]
     Active Substance: CARBOXYMETHYLCELLULOSE SODIUM
     Indication: DRY EYE
     Dosage: 1 GTT, UNKNOWN
     Route: 047

REACTIONS (7)
  - Accidental exposure to product [Unknown]
  - Eye operation [Unknown]
  - Drug ineffective [Unknown]
  - Product use issue [Unknown]
  - Eyelash injury [Unknown]
  - Foreign body in eye [Not Recovered/Not Resolved]
  - Eyelid margin crusting [Unknown]
